FAERS Safety Report 9981074 (Version 4)
Quarter: 2017Q2

REPORT INFORMATION
  Report Type: Report from Study
  Country: US (occurrence: US)
  Receive Date: 20140307
  Receipt Date: 20170630
  Transmission Date: 20170830
  Serious: Yes (Death, Hospitalization, Other)
  Sender: FDA-Public Use
  Company Number: US-UCBSA-114068

PATIENT
  Age: 71 Year
  Sex: Male
  Weight: 70 kg

DRUGS (41)
  1. CERTOLIZUMAB PEGOL CD [Suspect]
     Active Substance: CERTOLIZUMAB PEGOL
     Indication: CROHN^S DISEASE
     Dosage: 400 MG, UNK
     Route: 058
     Dates: start: 20110628, end: 20111005
  2. CERTOLIZUMAB PEGOL CD [Suspect]
     Active Substance: CERTOLIZUMAB PEGOL
     Dosage: 200 MG, UNK
     Route: 058
     Dates: start: 20111018, end: 20120515
  3. CATAPRES [Concomitant]
     Active Substance: CLONIDINE HYDROCHLORIDE
     Dosage: 0.3 MG WEEKLY, IF SYSTOLIC }160 TAL{E LASIX 80 MG OR 40MG
  4. ULORIC [Concomitant]
     Active Substance: FEBUXOSTAT
     Dosage: CRUSH PILL BEST ABSORBED: 80MG AM, 20MG MIDDAY 80MG PM
  5. TAMSULOSIN [Concomitant]
     Active Substance: TAMSULOSIN
     Dosage: 1 CAP PO AT BEDTIME
     Route: 048
  6. AMLODIPINE BESILATE [Concomitant]
     Active Substance: AMLODIPINE BESYLATE
     Dosage: PM DAILY NSTEAD OF LASIX)IF BP }160, 5 MG DAILY
  7. TESTIM [Concomitant]
     Active Substance: TESTOSTERONE
     Dosage: 1 TUBE/DAY } TEST
  8. LEVOTHYROXIN [Concomitant]
     Active Substance: LEVOTHYROXINE
     Indication: HYPOTHYROIDISM
     Dosage: 75 MG I DAY, 1 TABLET AM
  9. VENOFER [Concomitant]
     Active Substance: IRON SUCROSE
     Dosage: INTRAVENOUS, PER IRON TEST RESULTS (TIBC, FERRITIN, ETC.)
     Route: 042
  10. LIDOCAINE. [Concomitant]
     Active Substance: LIDOCAINE
     Indication: PAIN
     Dosage: APPLY TO PERIANAL AREA
  11. NAFTIN [Concomitant]
     Active Substance: NAFTIFINE HYDROCHLORIDE
     Dosage: APPLY AS NEEDED TO INGROWN TOENAIL
  12. PROBIOTICS NOS [Concomitant]
     Active Substance: PROBIOTICS NOS
     Dosage: W/ MEALS AND/OR 1/2 CUP COCONUT YOGURT
  13. KETOCONAZOL [Concomitant]
     Active Substance: KETOCONAZOLE
     Dosage: APPLY AS NEEDED TO FUNGAL AREA
  14. FERROCHELATE [Concomitant]
     Dosage: UNK
  15. OPIUM TINCTURE [Concomitant]
     Active Substance: MORPHINE
     Dosage: IF NEEDED FOR DIARRHEA PO 1 HR PRE-MEAL, 4-6 DROPS IN H20
  16. OXYCODONE AND ACETAMINOPHEN [Concomitant]
     Active Substance: ACETAMINOPHEN\OXYCODONE HYDROCHLORIDE
     Dosage: EMERGENCY USE I KIDNEY STONE PAIN; GO TO ER, , 7.50 I 325
  17. PROCRIT [Concomitant]
     Active Substance: ERYTHROPOIETIN
     Dosage: SUB-Q PER CBC I HGB BELOW 11 10K- 30K UNITS)
  18. TRIAMCINOLONE [Concomitant]
     Active Substance: TRIAMCINOLONE
     Dosage: APPLY SPARINGLY TO PERIANAL AREA
  19. CANASA [Concomitant]
     Active Substance: MESALAMINE
     Indication: UNEVALUABLE EVENT
  20. MUPIROCIN. [Concomitant]
     Active Substance: MUPIROCIN
     Dosage: APPLY AS NEEDED TO INGROWN TOENAIL
  21. ZINC SULFATE [Concomitant]
     Active Substance: ZINC SULFATE\ZINC SULFATE ANHYDROUS
     Dosage: TAKE COPPER AM AND PM AND ZN MIDDAY
  22. PREDNISONE. [Concomitant]
     Active Substance: PREDNISONE
     Indication: CROHN^S DISEASE
     Dosage: UNK
     Dates: start: 1967, end: 20140301
  23. PREDNISONE. [Concomitant]
     Active Substance: PREDNISONE
     Dosage: 9-8MG, 7.5MG CURRENTLY, 6 MG AM+ 2 MG PM (SLOWLY DROPPING DOSE 1/2MG EOW)
     Dates: start: 20130715
  24. IMODIUM [Concomitant]
     Active Substance: LOPERAMIDE HYDROCHLORIDE
     Dosage: MAX10 TABS I DAY, IF NEEDED FOR DIARRHEA 1-2 TAB 1 HR PRE-MEAL
  25. DIAZEPAM. [Concomitant]
     Active Substance: DIAZEPAM
     Dosage: IF NEEDED/5 -10 MG TO HELP RELAX
     Route: 048
  26. ORACIT [Concomitant]
     Active Substance: CITRIC ACID, 1-STEARYL ESTER\SODIUM CITRATE
     Dosage: 30 - 40 ML/ DAY, 3 - 5 ML IN H20 AFTER MEALS(BRUSH TEETH ACID RUINS ENAMEL)
  27. LASIX [Concomitant]
     Active Substance: FUROSEMIDE
     Dosage: 80 -160 MG I DAY, IF NEEDED1 TAKE AT 6 HR INTERVALS IF BP }160 OR EDEMA }1+
  28. LUNESTA [Concomitant]
     Active Substance: ESZOPICLONE
     Dosage: IF NEEDED FOR SLEEP, 3MG
  29. VITAMIN B12 [Concomitant]
     Active Substance: CYANOCOBALAMIN
     Dosage: 1000 MEG I ML SQ, TAKE WEEKLY FOR 6 WEEKS
     Route: 058
  30. GLUTAMINE [Concomitant]
     Active Substance: GLUTAMINE
     Dosage: ^H TSP ON CEREAL AM MAY TAKE 3X DAILY
  31. LYRICA [Concomitant]
     Active Substance: PREGABALIN
     Dosage: PERIPHERAL NET_JROPATHY: 2 AT BEDTIME (TITRATE UP/DOWN SLOWLY), 50 MG I DAY
  32. FLAGYL [Concomitant]
     Active Substance: METRONIDAZOLE\METRONIDAZOLE HYDROCHLORIDE
     Indication: ANTI-INFECTIVE THERAPY
     Dosage: METRONIDAZOLE POWDER IN WHITE PET. JELLY APPLY PERIANAL AREA
  33. AMINO ACID [Concomitant]
     Active Substance: AMINO ACIDS
     Dosage: 4 CAPS ON CEREAL AM
  34. LOMOTIL [Concomitant]
     Active Substance: ATROPINE SULFATE\DIPHENOXYLATE HYDROCHLORIDE
     Dosage: MAX 10 TABS/DAY, IF NEEDED FOR DIARRHEA 1-2 TAB 1HR PRE-MEAL (CONTRAIND.K CIT.)
  35. IGG [Concomitant]
     Active Substance: HUMAN IMMUNOGLOBULIN G
     Dosage: IV IF NEEDED PER GLOBULIN TEST RESULTS
     Route: 042
  36. PREPARATION H NOS [Concomitant]
     Active Substance: COCOA BUTTER\PETROLATUM\PHENYLEPHRINE HYDROCHLORIDE\PHENYLEPHRINE HYDROCHLORIDE OR MINERAL OIL
     Dosage: AS NEEDED (CONTAINS PHENYLEPHERINE HCL =VASOCONSTRICTOR)
  37. FOLIC ACID. [Concomitant]
     Active Substance: FOLIC ACID
  38. TRAMADOL. [Concomitant]
     Active Substance: TRAMADOL
     Dosage: IF NEEDED FOR ARTHRITIS PAIN; 1 TAB 4 - 6 HR APART; MAX 6/ DAY, 50 MG
  39. TACLONEX [Concomitant]
     Active Substance: BETAMETHASONE DIPROPIONATE\CALCIPOTRIENE\CALCIPOTRIENE HYDRATE
     Dosage: APPLY AS NEEDED TO DRY ELBOWS
  40. CALCIUM CITRATE [Concomitant]
     Active Substance: CALCIUM CITRATE
     Dosage: W/ MEALS TAKE IN 250 - 500 MG DOSES TO 2000 MG, 250 MG VEG CAPS
  41. VITAMIN D [Concomitant]
     Active Substance: CHOLECALCIFEROL
     Dosage: 50,000 UNITS, TEST EVERY 2 MOS LOW TAKE 1 EOD I 3 WKS }T1 EOW }TEST

REACTIONS (1)
  - Septic shock [Fatal]

NARRATIVE: CASE EVENT DATE: 20140301
